FAERS Safety Report 4862364-4 (Version None)
Quarter: 2005Q4

REPORT INFORMATION
  Report Type: 
  Country: None (occurrence: None)
  Receive Date: 20051221
  Receipt Date: 20021021
  Transmission Date: 20060501
  Serious: Yes (Hospitalization, Other)
  Sender: FDA-Public Use
  Company Number: US-BRISTOL-MYERS SQUIBB COMPANY-12088548

PATIENT
  Age: 82 Year
  Sex: Male
  Weight: 65 kg

DRUGS (13)
  1. TEQUIN [Interacting]
     Indication: CHRONIC OBSTRUCTIVE PULMONARY DISEASE
     Route: 048
     Dates: start: 20020517, end: 20020518
  2. GLYBURIDE [Interacting]
  3. ZITHROMAX [Suspect]
     Dosage: 1 TAB DAILY 10/5/02-14/5/02, 2 TAB DAILY 15/5/02-19/5/02, DOSE REDUCED 1 TAB DAILY 20/5-02-PRESENT
     Route: 048
     Dates: start: 20020510
  4. NOVASEN [Concomitant]
     Dosage: ^TAKEN FOR A LONG TIME^
  5. GLUCOPHAGE [Concomitant]
     Dosage: ^TAKEN FOR A LONG TIME^
  6. ADALAT [Concomitant]
     Dosage: ^TAKEN FOR A LONG TIME^
  7. CARDURA [Concomitant]
     Dosage: ^TAKEN FOR A LONG TIME^
  8. PANTOPRAZOLE SODIUM [Concomitant]
     Dosage: ^TAKEN FOR A LONG TIME^
  9. TEVETEN [Concomitant]
     Dosage: ^TAKEN FOR A LONG TIME^
  10. LASIX [Concomitant]
  11. EPREX [Concomitant]
  12. ASPIRIN [Concomitant]
  13. PREDNISONE TAB [Concomitant]
     Dates: start: 20020501

REACTIONS (3)
  - DRUG INTERACTION [None]
  - HYPERGLYCAEMIA [None]
  - HYPOGLYCAEMIA [None]
